FAERS Safety Report 6826317-9 (Version None)
Quarter: 2010Q3

REPORT INFORMATION
  Report Type: 
  Country: None (occurrence: None)
  Receive Date: 20100709
  Receipt Date: 20100705
  Transmission Date: 20110219
  Serious: Yes (Death)
  Sender: FDA-Public Use
  Company Number: PHHY2010US43973

PATIENT
  Sex: Female
  Weight: 58.957 kg

DRUGS (1)
  1. EXJADE [Suspect]
     Indication: BLOOD TEST ABNORMAL
     Dosage: 1000 MG
     Route: 048
     Dates: start: 20090610

REACTIONS (3)
  - HEPATIC FAILURE [None]
  - RENAL FAILURE [None]
  - RESPIRATORY FAILURE [None]
